FAERS Safety Report 25540936 (Version 2)
Quarter: 2025Q3

REPORT INFORMATION
  Report Type: Spontaneous
  Country: EU (occurrence: EU)
  Receive Date: 20250710
  Receipt Date: 20250715
  Transmission Date: 20251021
  Serious: Yes (Disabling)
  Sender: BRISTOL-MYERS SQUIBB COMPANY
  Company Number: None

PATIENT
  Age: 40 Year
  Sex: Male
  Weight: 113 kg

DRUGS (3)
  1. NELVUTAMIG [Suspect]
     Active Substance: NELVUTAMIG
     Indication: Renal cancer
     Dosage: 110 MG?IPILIMUMAB 1 MG/KG IV D1 Q21 + NIVOLUMAB 3 MG/KG IV D1 Q2
     Route: 042
     Dates: start: 20240925, end: 20241008
  2. NIVOLUMAB [Suspect]
     Active Substance: NIVOLUMAB
     Indication: Renal cancer
     Dosage: 330 MG?IPILIMUMAB 1 MG/KG IV D1 Q21 + NIVOLUMAB 3 MG/KG IV D1 Q2
     Route: 042
     Dates: start: 20240925, end: 20241008
  3. ELIQUIS [Concomitant]
     Active Substance: APIXABAN
     Indication: Pulmonary embolism
     Dosage: 5 MG 2 TIMES DAILY
     Route: 048

REACTIONS (2)
  - Hypoacusis [Recovering/Resolving]
  - Vertigo [Recovered/Resolved]

NARRATIVE: CASE EVENT DATE: 20241008
